FAERS Safety Report 13064459 (Version 2)
Quarter: 2016Q4

REPORT INFORMATION
  Report Type: Other
  Country: IT (occurrence: IT)
  Receive Date: 20161227
  Receipt Date: 20161228
  Transmission Date: 20170207
  Serious: Yes (Hospitalization)
  Sender: FDA-Public Use
  Company Number: IT-DEXPHARM-20162469

PATIENT
  Age: 65 Year
  Sex: Female

DRUGS (6)
  1. PAROXETINE. [Suspect]
     Active Substance: PAROXETINE
     Indication: DEPRESSION
  2. MANNITOL. [Concomitant]
     Active Substance: MANNITOL
     Dosage: EVERY 6 HOURS
     Route: 042
  3. CEFAZOLINE [Concomitant]
     Active Substance: CEFAZOLIN SODIUM
     Route: 042
  4. ENOXAPARIN [Concomitant]
     Active Substance: ENOXAPARIN
     Route: 058
  5. LEVETIRACETAM. [Suspect]
     Active Substance: LEVETIRACETAM
  6. DEXAMETHASONE. [Concomitant]
     Active Substance: DEXAMETHASONE
     Route: 042

REACTIONS (3)
  - Pancytopenia [Recovered/Resolved]
  - Cholelithiasis [Recovered/Resolved]
  - Drug interaction [Recovered/Resolved]
